FAERS Safety Report 7934210-3 (Version None)
Quarter: 2011Q4

REPORT INFORMATION
  Report Type: 
  Country: None (occurrence: None)
  Receive Date: 20111118
  Receipt Date: 20111108
  Transmission Date: 20120403
  Serious: Yes (Hospitalization)
  Sender: FDA-Public Use
  Company Number: 1000025582

PATIENT
  Age: 84 Year
  Sex: Female

DRUGS (5)
  1. PARACETAMOL(PARACETAMOL) (PARACETAMOL) [Concomitant]
  2. CITALOPRAM HYDROBROMIDE [Suspect]
     Indication: DEPRESSION
     Dosage: 1 IN I D , ORAL
     Route: 048
     Dates: start: 20110221
  3. SIMVASTATIN [Concomitant]
  4. ASPIRIN [Suspect]
     Indication: CARDIOVASCULAR EVENT PROPHYLAXIS
     Dosage: 75 MG I IN I D ORAL
     Route: 048
     Dates: start: 20110221
  5. GTN (GLYCERYL TRINITRATE) (GLYCERYL TRINITRATE) [Concomitant]

REACTIONS (4)
  - ABDOMINAL PAIN [None]
  - UPPER GASTROINTESTINAL HAEMORRHAGE [None]
  - FAECES DISCOLOURED [None]
  - DUODENAL ULCER [None]
